FAERS Safety Report 4304990-7 (Version None)
Quarter: 2004Q1

REPORT INFORMATION
  Report Type: 
  Country: None (occurrence: None)
  Receive Date: 20040226
  Receipt Date: 20040129
  Transmission Date: 20041129
  Serious: No
  Sender: FDA-Public Use
  Company Number: US-GLAXOSMITHKLINE-A0495721A

PATIENT
  Age: 46 Year
  Sex: Female

DRUGS (3)
  1. WELLBUTRIN XL [Suspect]
     Indication: DEPRESSION
     Dosage: 300MG PER DAY
     Route: 048
     Dates: start: 20040104, end: 20040124
  2. VITAMIN B COMPLEX CAP [Concomitant]
  3. DOSTINEX [Concomitant]

REACTIONS (1)
  - URTICARIA [None]
